FAERS Safety Report 6491816-9 (Version None)
Quarter: 2009Q4

REPORT INFORMATION
  Report Type: 
  Country: None (occurrence: None)
  Receive Date: 20091210
  Receipt Date: 20091207
  Transmission Date: 20100525
  Serious: Yes (Death)
  Sender: FDA-Public Use
  Company Number: 2009SP030336

PATIENT
  Age: 97 Year
  Sex: Male

DRUGS (21)
  1. PROVENTIL-HFA [Suspect]
     Indication: COUGH
     Dosage: PRN
     Dates: start: 20090513
  2. PROVENTIL-HFA [Suspect]
     Indication: DYSPNOEA
     Dosage: PRN
     Dates: start: 20090513
  3. PROVENTIL-HFA [Suspect]
     Indication: WHEEZING
     Dosage: PRN
     Dates: start: 20090513
  4. ADVAIR DISKUS 100/50 [Concomitant]
  5. COMBIVENT [Concomitant]
  6. PRILOSEC [Concomitant]
  7. FLOMAX [Concomitant]
  8. MIRAPEX [Concomitant]
  9. LASIX [Concomitant]
  10. TYENOL [Concomitant]
  11. ASPIRIN [Concomitant]
  12. IBUPROFEN [Concomitant]
  13. MULTI-VITAMINS [Concomitant]
  14. COLACE [Concomitant]
  15. SENNOSIDES [Concomitant]
  16. MIRALAX [Concomitant]
  17. IRON [Concomitant]
  18. TYLENOL W/ CODEINE [Concomitant]
  19. K-TAB [Concomitant]
  20. OXYCODONE HCL [Concomitant]
  21. LORAZEPAM [Concomitant]

REACTIONS (1)
  - DEATH [None]
